FAERS Safety Report 19648949 (Version 1)
Quarter: 2021Q3

REPORT INFORMATION
  Report Type: Spontaneous
  Country: US (occurrence: US)
  Receive Date: 20210803
  Receipt Date: 20210803
  Transmission Date: 20211014
  Serious: Yes (Other)
  Sender: FDA-Public Use
  Company Number: US-SUN PHARMACEUTICAL INDUSTRIES LTD-2021R1-306255

PATIENT
  Age: 26 Year
  Sex: Female

DRUGS (12)
  1. NORADRENALINE [Suspect]
     Active Substance: NOREPINEPHRINE
     Indication: PRODUCT USED FOR UNKNOWN INDICATION
     Dosage: UNK
     Route: 042
  2. AZITHROMYCIN ANHYDROUS. [Suspect]
     Active Substance: AZITHROMYCIN ANHYDROUS
     Indication: WHEEZING
     Dosage: UNK
     Route: 048
  3. FUROSEMIDE. [Suspect]
     Active Substance: FUROSEMIDE
     Indication: WHEEZING
     Dosage: UNK
     Route: 042
  4. PROPOFOL. [Suspect]
     Active Substance: PROPOFOL
     Indication: PRODUCT USED FOR UNKNOWN INDICATION
     Dosage: UNK
     Route: 042
  5. SULFACETAMIDE. [Suspect]
     Active Substance: SULFACETAMIDE
     Indication: ERYTHEMA
     Dosage: UNK
     Route: 065
  6. GUAIFENESIN. [Suspect]
     Active Substance: GUAIFENESIN
     Indication: WHEEZING
     Dosage: UNK
     Route: 048
  7. ERYTHROMYCIN. [Suspect]
     Active Substance: ERYTHROMYCIN
     Indication: ERYTHEMA
     Dosage: UNK
     Route: 065
  8. MAGNESIUM SULFATE. [Suspect]
     Active Substance: MAGNESIUM SULFATE
     Indication: TOCOLYSIS
     Dosage: UNK
     Route: 030
  9. FENTANYL. [Suspect]
     Active Substance: FENTANYL
     Indication: PRODUCT USED FOR UNKNOWN INDICATION
     Dosage: UNK
     Route: 042
  10. BETAMETHASONE. [Suspect]
     Active Substance: BETAMETHASONE
     Indication: TOCOLYSIS
     Dosage: UNK
     Route: 030
  11. HEPARIN [Suspect]
     Active Substance: HEPARIN SODIUM
     Indication: THROMBOSIS
     Dosage: UNK
     Route: 042
  12. ADRENALINE [Suspect]
     Active Substance: EPINEPHRINE
     Indication: TACHYCARDIA
     Dosage: UNK
     Route: 065

REACTIONS (5)
  - Exposure during pregnancy [Unknown]
  - Chest pain [Unknown]
  - Pulse absent [Unknown]
  - Unresponsive to stimuli [Unknown]
  - Live birth [Unknown]
